FAERS Safety Report 6333199-0 (Version None)
Quarter: 2009Q3

REPORT INFORMATION
  Report Type: 
  Country: None (occurrence: None)
  Receive Date: 20090828
  Receipt Date: 20090824
  Transmission Date: 20100115
  Serious: Yes (Other)
  Sender: FDA-Public Use
  Company Number: US-GENENTECH-288741

PATIENT
  Sex: Female

DRUGS (7)
  1. XOLAIR [Suspect]
     Indication: ASTHMA
     Dosage: 300 MG, 1/MONTH
     Route: 058
     Dates: start: 20081104
  2. ASMANEX TWISTHALER [Concomitant]
     Indication: ASTHMA
     Dosage: 220 A?G, QPM
     Route: 055
     Dates: start: 20080624
  3. SINGULAIR [Concomitant]
     Indication: ASTHMA
     Dosage: 24 MG, QD
     Route: 048
     Dates: start: 20080624
  4. CLARINEX [Concomitant]
     Indication: HYPERSENSITIVITY
     Dosage: 1 UNK, QD
  5. SYNTHROID [Concomitant]
     Indication: HYPOTHYROIDISM
     Dosage: 112 A?G, UNK
     Route: 048
     Dates: start: 19840101
  6. NORDITROPIN [Concomitant]
     Indication: DRUG USE FOR UNKNOWN INDICATION
     Dosage: 30 MG, QD
     Route: 048
  7. ALBUTEROL [Concomitant]
     Indication: ASTHMA
     Dosage: 2 PUFF, PRN
     Route: 055

REACTIONS (2)
  - ANAPHYLACTIC REACTION [None]
  - THROAT TIGHTNESS [None]
